FAERS Safety Report 20973076 (Version 1)
Quarter: 2022Q2

REPORT INFORMATION
  Report Type: Spontaneous
  Country: BR (occurrence: None)
  Receive Date: 20220617
  Receipt Date: 20220617
  Transmission Date: 20220721
  Serious: Yes (Other)
  Sender: FDA-Public Use
  Company Number: BR-ROCHE-3116305

PATIENT
  Age: 62 Year
  Sex: Male

DRUGS (1)
  1. MABTHERA [Suspect]
     Active Substance: RITUXIMAB
     Indication: Non-Hodgkin^s lymphoma
     Route: 041

REACTIONS (3)
  - Tremor [Recovered/Resolved]
  - Pallor [Unknown]
  - Feeling cold [Unknown]

NARRATIVE: CASE EVENT DATE: 20201120
